FAERS Safety Report 14398668 (Version 5)
Quarter: 2018Q3

REPORT INFORMATION
  Report Type: Spontaneous
  Country: JP (occurrence: JP)
  Receive Date: 20180117
  Receipt Date: 20180927
  Transmission Date: 20181010
  Serious: Yes (Life-Threatening, Hospitalization)
  Sender: FDA-Public Use
  Company Number: JP-ROCHE-2056653

PATIENT
  Age: 45 Year
  Sex: Female
  Weight: 81 kg

DRUGS (1)
  1. TAMIFLU [Suspect]
     Active Substance: OSELTAMIVIR PHOSPHATE
     Indication: INFLUENZA
     Route: 048
     Dates: start: 20171229, end: 20180102

REACTIONS (6)
  - Blood creatinine increased [Recovered/Resolved with Sequelae]
  - Altered state of consciousness [Recovered/Resolved]
  - Overdose [Unknown]
  - Blood urea increased [Recovered/Resolved with Sequelae]
  - Renal impairment [Unknown]
  - Restlessness [Unknown]

NARRATIVE: CASE EVENT DATE: 20180104
